FAERS Safety Report 23498712 (Version 1)
Quarter: 2024Q1

REPORT INFORMATION
  Report Type: Spontaneous
  Country: GB (occurrence: GB)
  Receive Date: 20240207
  Receipt Date: 20240207
  Transmission Date: 20240409
  Serious: Yes (Death, Hospitalization, Other)
  Sender: FDA-Public Use
  Company Number: GB-NOVPHSZ-PHHY2016GB187024

PATIENT
  Age: 67 Year
  Sex: Female

DRUGS (16)
  1. TAMOXIFEN [Suspect]
     Active Substance: TAMOXIFEN
     Indication: Breast cancer metastatic
     Dosage: 20 MG, QD TIME INTERVAL BETWEEN BEGINNING OF DRUG
     Route: 065
     Dates: start: 20160712, end: 20160802
  2. TAMOXIFEN [Suspect]
     Active Substance: TAMOXIFEN
     Indication: Breast cancer metastatic
     Dosage: 600 MG, Q3W
     Route: 065
  3. TAMOXIFEN [Suspect]
     Active Substance: TAMOXIFEN
     Indication: Breast cancer metastatic
     Route: 065
  4. CAPECITABINE [Suspect]
     Active Substance: CAPECITABINE
     Indication: Breast cancer metastatic
     Dosage: 1000 MG (EVERY 4 DAYS)
     Route: 065
     Dates: start: 20161122, end: 20161213
  5. CAPECITABINE [Suspect]
     Active Substance: CAPECITABINE
     Indication: Breast cancer metastatic
     Dosage: 1300 MG, 2 MULTIPLY/DAY (TIME INTERVAL BETWEEN BEGINNING OF DRUG ADMINISTRATION AND END OF REACTION/
     Route: 065
     Dates: start: 20161213, end: 20161216
  6. CAPECITABINE [Suspect]
     Active Substance: CAPECITABINE
     Indication: Breast cancer metastatic
     Dosage: 1000 MG
     Route: 065
     Dates: start: 20161213, end: 20161216
  7. CAPECITABINE [Suspect]
     Active Substance: CAPECITABINE
     Indication: Breast cancer metastatic
     Dosage: 1000 MG (1500 MG, 1300 MG FROM 13 DEC 2016 TO 16 DEC 2016)
     Route: 065
     Dates: start: 20161122
  8. CAPECITABINE [Suspect]
     Active Substance: CAPECITABINE
     Indication: Breast cancer metastatic
     Dosage: 1500 MG (TIME INTERVAL BETWEEN BEGINNING OF DRUG ADMINISTRATION AND END OF REACTION/EV)
     Route: 065
     Dates: start: 20161122, end: 20161213
  9. PACLITAXEL [Suspect]
     Active Substance: PACLITAXEL
     Indication: HER2 positive breast cancer
     Dosage: 141 MG
     Route: 065
     Dates: start: 20161122
  10. PACLITAXEL [Suspect]
     Active Substance: PACLITAXEL
     Indication: HER2 positive breast cancer
     Dosage: 141 MG
     Route: 065
     Dates: start: 20161124
  11. PACLITAXEL [Suspect]
     Active Substance: PACLITAXEL
     Indication: HER2 positive breast cancer
     Dosage: 141 MG, QMO
     Route: 065
     Dates: start: 20151124, end: 20151221
  12. EXEMESTANE [Suspect]
     Active Substance: EXEMESTANE
     Indication: Breast cancer metastatic
     Dosage: 25 MG, QD
     Route: 065
     Dates: start: 20160531, end: 20160610
  13. EXEMESTANE [Suspect]
     Active Substance: EXEMESTANE
     Indication: Breast cancer metastatic
     Dosage: UNK, QD
     Route: 065
     Dates: start: 20160712
  14. EXEMESTANE [Suspect]
     Active Substance: EXEMESTANE
     Indication: Breast cancer metastatic
     Dosage: UNK
     Route: 065
     Dates: start: 20160531, end: 20160610
  15. HYALURONIDASE [Suspect]
     Active Substance: HYALURONIDASE
     Indication: HER2 positive breast cancer
     Dosage: 600 MG, TIW
     Route: 065
     Dates: start: 20160531, end: 20161115
  16. HYALURONIDASE [Suspect]
     Active Substance: HYALURONIDASE
     Indication: HER2 positive breast cancer
     Dosage: 600 MG, TIW
     Route: 065
     Dates: start: 20151124, end: 20151221

REACTIONS (66)
  - Agitation [Fatal]
  - Rectal haemorrhage [Fatal]
  - Injection site pain [Recovered/Resolved]
  - Product administered at inappropriate site [Unknown]
  - Vomiting [Fatal]
  - Vomiting [Fatal]
  - Crying [Fatal]
  - Diarrhoea [Fatal]
  - Ascites [Fatal]
  - Headache [Fatal]
  - Nausea [Fatal]
  - Ill-defined disorder [Fatal]
  - Dyspnoea [Fatal]
  - Abdominal pain upper [Fatal]
  - Blood glucose increased [Fatal]
  - Depressed mood [Fatal]
  - Constipation [Fatal]
  - White blood cell count increased [Fatal]
  - Haemorrhage [Unknown]
  - Hypertension [Recovered/Resolved with Sequelae]
  - Asthenia [Fatal]
  - Muscle twitching [Fatal]
  - Hypertension [Fatal]
  - Back pain [Fatal]
  - Vomiting [Fatal]
  - Blood urea increased [Fatal]
  - Vomiting [Fatal]
  - Protein total decreased [Fatal]
  - Neck pain [Unknown]
  - Sensory loss [Fatal]
  - Musculoskeletal stiffness [Fatal]
  - Dyspnoea [Fatal]
  - Sinusitis [Fatal]
  - Malaise [Not Recovered/Not Resolved]
  - Sensory disturbance [Fatal]
  - Alanine aminotransferase increased [Fatal]
  - C-reactive protein increased [Fatal]
  - Blood alkaline phosphatase increased [Recovered/Resolved with Sequelae]
  - Blood creatinine increased [Fatal]
  - Fatigue [Fatal]
  - Nausea [Fatal]
  - Urinary tract infection [Fatal]
  - Blood alkaline phosphatase increased [Fatal]
  - Death [Fatal]
  - Blood phosphorus increased [Fatal]
  - Aspartate aminotransferase increased [Fatal]
  - Lymphopenia [Fatal]
  - Haemoglobin decreased [Fatal]
  - Hypernatraemia [Fatal]
  - Insomnia [Fatal]
  - Cerebral haemorrhage [Fatal]
  - Balance disorder [Fatal]
  - Hypoalbuminaemia [Fatal]
  - Balance disorder [Fatal]
  - Colitis ulcerative [Fatal]
  - Cerebral haemorrhage [Fatal]
  - Pyrexia [Fatal]
  - Product administered at inappropriate site [Fatal]
  - Tremor [Fatal]
  - Hypokalaemia [Fatal]
  - Irritability [Fatal]
  - Pain [Fatal]
  - Blood bilirubin increased [Fatal]
  - Crohn^s disease [Fatal]
  - Fatigue [Unknown]
  - Neutrophil count increased [Fatal]

NARRATIVE: CASE EVENT DATE: 20151110
